FAERS Safety Report 23117625 (Version 2)
Quarter: 2023Q4

REPORT INFORMATION
  Report Type: Other
  Country: IN (occurrence: None)
  Receive Date: 20231027
  Receipt Date: 20231103
  Transmission Date: 20240109
  Serious: Yes (Other)
  Sender: FDA-Public Use
  Company Number: IN-ROCHE-3444350

PATIENT
  Age: 43 Year
  Sex: Female

DRUGS (1)
  1. TOCILIZUMAB [Suspect]
     Active Substance: TOCILIZUMAB
     Indication: Rheumatoid arthritis
     Dosage: NA ;ONGOING: YES
     Route: 042
     Dates: start: 20220620

REACTIONS (1)
  - Vascular stenosis [Recovered/Resolved with Sequelae]
